FAERS Safety Report 18013914 (Version 1)
Quarter: 2020Q3

REPORT INFORMATION
  Report Type: Spontaneous
  Country: FR (occurrence: FR)
  Receive Date: 20200713
  Receipt Date: 20200713
  Transmission Date: 20201103
  Serious: Yes (Death, Other)
  Sender: FDA-Public Use
  Company Number: FR-CORDEN PHARMA LATINA S.P.A.-FR-2020COR000013

PATIENT
  Age: 58 Year

DRUGS (3)
  1. ETOPOSIDE. [Suspect]
     Active Substance: ETOPOSIDE
     Indication: MALIGNANT RESPIRATORY TRACT NEOPLASM
     Dosage: UNK, 5 CYCLES
     Route: 042
  2. CARBOPLATIN. [Suspect]
     Active Substance: CARBOPLATIN
     Indication: MALIGNANT RESPIRATORY TRACT NEOPLASM
     Dosage: UNK, 3 CYCLES
     Route: 042
  3. CISPLATIN. [Suspect]
     Active Substance: CISPLATIN
     Indication: MALIGNANT RESPIRATORY TRACT NEOPLASM
     Dosage: UNK, 2 CYCLES
     Route: 065

REACTIONS (2)
  - Progressive multifocal leukoencephalopathy [Fatal]
  - Inappropriate antidiuretic hormone secretion [Unknown]
